FAERS Safety Report 5332493-X (Version None)
Quarter: 2007Q2

REPORT INFORMATION
  Report Type: 
  Country: None (occurrence: None)
  Receive Date: 20070521
  Receipt Date: 20070513
  Transmission Date: 20071010
  Serious: Yes (Hospitalization)
  Sender: FDA-Public Use
  Company Number: TCI2007A02075

PATIENT
  Age: 78 Year
  Sex: Male

DRUGS (3)
  1. ACTOS [Suspect]
     Indication: DIABETES MELLITUS NON-INSULIN-DEPENDENT
     Dosage: 15 MG (15 MG,1 IN 1 D)
     Route: 048
     Dates: start: 20060904, end: 20070101
  2. BLOPRESS (CANDESARTAN CILEXETIL) [Suspect]
     Dosage: 8 MG (8 MG,1 IN 1 D)
     Route: 048
     Dates: start: 20001027, end: 20070101
  3. GLYBURIDE [Suspect]
     Dosage: 5 MG (2.5 MG,2 IN 1 D)
     Route: 048
     Dates: start: 20001027, end: 20070101

REACTIONS (4)
  - CEREBRAL INFARCTION [None]
  - HEMIPLEGIA [None]
  - PNEUMONIA ASPIRATION [None]
  - SPEECH DISORDER [None]
